FAERS Safety Report 6287953-4 (Version None)
Quarter: 2009Q3

REPORT INFORMATION
  Report Type: 
  Country: None (occurrence: None)
  Receive Date: 20090729
  Receipt Date: 20090725
  Transmission Date: 20100115
  Serious: Yes (Hospitalization, Other)
  Sender: FDA-Public Use
  Company Number: US-BRISTOL-MYERS SQUIBB COMPANY-14718282

PATIENT
  Age: 85 Year
  Sex: Male

DRUGS (2)
  1. COUMADIN [Suspect]
     Indication: ATRIAL FIBRILLATION
     Route: 048
  2. BUMEX [Concomitant]

REACTIONS (5)
  - HYPOTENSION [None]
  - OEDEMA PERIPHERAL [None]
  - PALLOR [None]
  - RENAL FAILURE [None]
  - TREMOR [None]
